FAERS Safety Report 16415364 (Version 1)
Quarter: 2019Q2

REPORT INFORMATION
  Report Type: Spontaneous
  Country: US (occurrence: US)
  Receive Date: 20190611
  Receipt Date: 20190611
  Transmission Date: 20190711
  Serious: No
  Sender: FDA-Public Use
  Company Number: US-IPSEN BIOPHARMACEUTICALS, INC.-2019-09496

PATIENT
  Age: 55 Year
  Sex: Female

DRUGS (6)
  1. DYSPORT [Suspect]
     Active Substance: ABOBOTULINUMTOXINA
     Indication: SKIN WRINKLING
     Dosage: 120 IU (GLABELLA, FOREHEAD AND CROW^S FEET)
     Route: 065
     Dates: start: 20190314, end: 20190314
  2. DYSPORT [Suspect]
     Active Substance: ABOBOTULINUMTOXINA
     Indication: SKIN WRINKLING
  3. DYSPORT [Suspect]
     Active Substance: ABOBOTULINUMTOXINA
     Indication: OFF LABEL USE
  4. DYSPORT [Suspect]
     Active Substance: ABOBOTULINUMTOXINA
     Indication: SKIN WRINKLING
  5. SCULPTRA AESTHETIC [Suspect]
     Active Substance: POLYLACTIDE, L-
     Indication: SKIN WRINKLING
     Dosage: 4.5 ML IN EACH TEMPLE
     Dates: start: 20190314, end: 20190314
  6. RETINOL [Concomitant]
     Active Substance: RETINOL

REACTIONS (3)
  - Prescribed overdose [Unknown]
  - Blepharitis [Not Recovered/Not Resolved]
  - Off label use [Unknown]

NARRATIVE: CASE EVENT DATE: 20190314
